FAERS Safety Report 9231108 (Version 1)
Quarter: 2013Q2

REPORT INFORMATION
  Report Type: Spontaneous
  Country: DK (occurrence: DK)
  Receive Date: 20130415
  Receipt Date: 20130415
  Transmission Date: 20140414
  Serious: Yes (Other)
  Sender: FDA-Public Use
  Company Number: PHHY2013DK034421

PATIENT
  Sex: 0

DRUGS (5)
  1. SERTRALINE [Suspect]
  2. MIRTAZAPINE [Suspect]
  3. NORTRIPTYLINE [Suspect]
  4. CHLORZOXAZONE [Suspect]
  5. MORFINA CLORURO [Suspect]

REACTIONS (3)
  - Mental disorder [Unknown]
  - Fatigue [Unknown]
  - Overdose [Unknown]
